FAERS Safety Report 10549933 (Version 2)
Quarter: 2015Q1

REPORT INFORMATION
  Report Type: Spontaneous
  Country: US (occurrence: None)
  Receive Date: 20141020
  Receipt Date: 20150120
  Transmission Date: 20150720
  Serious: No
  Sender: FDA-Public Use
  Company Number: AEGR000740

PATIENT
  Age: 52 Year
  Sex: Female
  Weight: 79.4 kg

DRUGS (10)
  1. CRESTOR [Concomitant]
     Active Substance: ROSUVASTATIN CALCIUM
  2. JUXTAPID [Suspect]
     Active Substance: LOMITAPIDE MESYLATE
     Indication: TYPE IIA HYPERLIPIDAEMIA
     Route: 048
     Dates: start: 20140907
  3. EFFIENT (PRASUGREL HYDROCHLORIDE) TABLET [Concomitant]
  4. METFORMIN ER (METFORMIN HYDORCHLORIDE) TABLET [Concomitant]
  5. VITAMIN B12 (CYANOCOBALAMIN) TABLET [Concomitant]
  6. LOW DOSE ASPIRIN (E.C.) (ACETYLSALICYLIC ACID) TABLET??? [Concomitant]
  7. HUMALOG (INSULIN ISPRO) [Concomitant]
  8. VITAMIN D (COLECALCIFEROL) TABLET [Concomitant]
  9. DIOVAN (VALSARTAN) TABLET [Concomitant]
  10. LANTUS [Concomitant]
     Active Substance: INSULIN GLARGINE

REACTIONS (1)
  - Blood glucose decreased [None]

NARRATIVE: CASE EVENT DATE: 201409
